FAERS Safety Report 9602175 (Version 1)
Quarter: 2013Q4

REPORT INFORMATION
  Report Type: Spontaneous
  Country: GB (occurrence: None)
  Receive Date: 20131003
  Receipt Date: 20131003
  Transmission Date: 20140711
  Serious: Yes (Hospitalization, Other)
  Sender: FDA-Public Use
  Company Number: GB-ALKEM-000166

PATIENT
  Age: 47 Year
  Sex: Female

DRUGS (8)
  1. QUETIAPINE [Suspect]
     Indication: PRODUCT USED FOR UNKNOWN INDICATION
     Route: 048
  2. RAMIPRIL(RAMIPRIL) [Concomitant]
  3. OMEPRAZOLE(OMEPRAZOLE) [Concomitant]
  4. MIRTAZAPINE(MIRTAZAPINE [Concomitant]
  5. LORATADINE(LORTADINE) [Concomitant]
  6. BISOPROLOL(BISOPROLOL) [Concomitant]
  7. SERTRALINE(SERTRALINE) [Concomitant]
  8. ASPIRIN(ASPIRIN) [Concomitant]

REACTIONS (1)
  - Pericarditis [None]
